FAERS Safety Report 8564050 (Version 3)
Quarter: 2013Q2

REPORT INFORMATION
  Report Type: Spontaneous
  Country: US (occurrence: US)
  Receive Date: 20120516
  Receipt Date: 20130626
  Transmission Date: 20140414
  Serious: Yes (Other)
  Sender: FDA-Public Use
  Company Number: US-PFIZER INC-2012117050

PATIENT
  Sex: Female

DRUGS (1)
  1. EFFEXOR XR [Suspect]
     Dosage: UNK

REACTIONS (7)
  - Pneumonia [Unknown]
  - Homicidal ideation [Unknown]
  - Aggression [Unknown]
  - Abnormal behaviour [Unknown]
  - Malaise [Unknown]
  - Irritability [Unknown]
  - Depressed mood [Unknown]
